FAERS Safety Report 13231462 (Version 2)
Quarter: 2017Q2

REPORT INFORMATION
  Report Type: Spontaneous
  Country: US (occurrence: US)
  Receive Date: 20170214
  Receipt Date: 20170621
  Transmission Date: 20170830
  Serious: No
  Sender: FDA-Public Use
  Company Number: US-TEVA-728201ACC

PATIENT
  Age: 75 Year
  Sex: Female

DRUGS (8)
  1. ARTHRITIS [Concomitant]
     Active Substance: TROLAMINE SALICYLATE
     Dates: start: 20161024
  2. HYDROCODONE W/ACETAMINOPHEN [Concomitant]
     Active Substance: ACETAMINOPHEN\HYDROCODONE BITARTRATE
     Dosage: HYDROCODONR 10MG - ACETAMINOPHEN 300MG; 1 TABLET EVERY 6 HOURS
     Route: 048
     Dates: start: 20161025
  3. LASIX [Concomitant]
     Active Substance: FUROSEMIDE
     Dosage: TAKE 1 TABLET EVERY 6 HOURS
     Route: 048
     Dates: start: 20161025
  4. MUCINEX [Concomitant]
     Active Substance: GUAIFENESIN
     Dates: start: 20161025
  5. VITAMIN B12 [Concomitant]
     Active Substance: CYANOCOBALAMIN
     Dates: start: 20161025
  6. LOSARTAN. [Concomitant]
     Active Substance: LOSARTAN
     Dosage: TAKE HALF TABLET BY MOUTH EVERY DAY
     Route: 048
     Dates: start: 20161025
  7. ANASTROZOLE. [Suspect]
     Active Substance: ANASTROZOLE
     Dates: start: 201602, end: 20160731
  8. AROMASIN [Concomitant]
     Active Substance: EXEMESTANE
     Dosage: 1 TABLET EVERY DAY
     Route: 048
     Dates: start: 20161025

REACTIONS (7)
  - Drug intolerance [Unknown]
  - Mood swings [Recovered/Resolved with Sequelae]
  - Hot flush [Recovered/Resolved with Sequelae]
  - Arthralgia [Recovered/Resolved with Sequelae]
  - Depression [Recovered/Resolved with Sequelae]
  - Memory impairment [Recovered/Resolved with Sequelae]
  - Weight increased [Recovered/Resolved with Sequelae]

NARRATIVE: CASE EVENT DATE: 2016
